FAERS Safety Report 4401674-1 (Version None)
Quarter: 2004Q3

REPORT INFORMATION
  Report Type: 
  Country: None (occurrence: None)
  Receive Date: 20040719
  Receipt Date: 20010108
  Transmission Date: 20050211
  Serious: Yes (Life-Threatening, Hospitalization)
  Sender: FDA-Public Use
  Company Number: NL-GLAXOSMITHKLINE-B0244377A

PATIENT
  Age: 34 Year
  Sex: Female

DRUGS (1)
  1. AMOXICILLIN/CLAVULANIC ACID [Suspect]
     Indication: URINARY TRACT INFECTION
     Dosage: 625MG THREE TIMES PER DAY
     Route: 048
     Dates: start: 20000612, end: 20000618

REACTIONS (2)
  - HEPATOCELLULAR DAMAGE [None]
  - JAUNDICE CHOLESTATIC [None]
